FAERS Safety Report 19785705 (Version 1)
Quarter: 2021Q3

REPORT INFORMATION
  Report Type: Spontaneous
  Country: DE (occurrence: DE)
  Receive Date: 20210903
  Receipt Date: 20210903
  Transmission Date: 20211014
  Serious: Yes (Hospitalization)
  Sender: FDA-Public Use
  Company Number: DE-ACCORD-236918

PATIENT
  Age: 71 Year
  Sex: Male
  Weight: 90 kg

DRUGS (9)
  1. IRINOTECAN [Suspect]
     Active Substance: IRINOTECAN
     Indication: PRODUCT USED FOR UNKNOWN INDICATION
     Dosage: SOLUTION FOR INJECTION / INFUSION
     Route: 042
  2. FOLINIC ACID [Suspect]
     Active Substance: LEUCOVORIN
     Indication: PRODUCT USED FOR UNKNOWN INDICATION
     Dosage: SOLUTION FOR INJECTION / INFUSION
     Route: 042
  3. ALNA [Concomitant]
     Active Substance: TAMSULOSIN HYDROCHLORIDE
     Dosage: 0.4 MG, 0?0?1?0, CAPSULES
     Route: 048
  4. FLUOROURACIL. [Suspect]
     Active Substance: FLUOROURACIL
     Indication: PRODUCT USED FOR UNKNOWN INDICATION
     Route: 042
  5. ELIQUIS [Concomitant]
     Active Substance: APIXABAN
     Dosage: 2.5 MG, 1?0?1?0, TABLETS
     Route: 048
  6. METOPROLOL. [Concomitant]
     Active Substance: METOPROLOL
     Dosage: 47.5 MG, 1?0?1?0, PROLONGED?RELEASE TABLET
     Route: 048
  7. BENZBROMARONE [Concomitant]
     Active Substance: BENZBROMARONE
     Dosage: 20 MG, 0?0?1?0, TABLETS
     Route: 048
  8. ALLOPURINOL. [Concomitant]
     Active Substance: ALLOPURINOL
     Dosage: 100 MG, 0?0?1?0, TABLETS
     Route: 048
  9. APROVEL [Concomitant]
     Active Substance: IRBESARTAN
     Dosage: 150 MG, 1?0?1?0, TABLETS
     Route: 048

REACTIONS (4)
  - Fatigue [Recovering/Resolving]
  - Asthenia [Recovering/Resolving]
  - Dizziness [Recovering/Resolving]
  - General physical health deterioration [Recovering/Resolving]
